FAERS Safety Report 8475032-7 (Version None)
Quarter: 2012Q2

REPORT INFORMATION
  Report Type: 
  Country: None (occurrence: None)
  Receive Date: 20120628
  Receipt Date: 20120619
  Transmission Date: 20120825
  Serious: Yes (Other)
  Sender: FDA-Public Use
  Company Number: US-JNJFOC-20120507201

PATIENT
  Sex: Female
  Weight: 108.86 kg

DRUGS (4)
  1. TOPAMAX [Suspect]
     Indication: PAIN
     Route: 048
     Dates: start: 20060101
  2. FENTANYL-100 [Suspect]
     Indication: PAIN
     Route: 062
     Dates: start: 20030101
  3. OXYCODONE HCL [Concomitant]
     Indication: PAIN
     Route: 048
     Dates: start: 20010101
  4. FLUOXETINE [Concomitant]
     Indication: DEPRESSION
     Route: 048
     Dates: start: 19980101

REACTIONS (5)
  - ADVERSE EVENT [None]
  - HEADACHE [None]
  - SOMNOLENCE [None]
  - MIGRAINE [None]
  - DRUG INEFFECTIVE [None]
